FAERS Safety Report 9091759 (Version 1)
Quarter: 2013Q1

REPORT INFORMATION
  Report Type: Spontaneous
  Country: AR (occurrence: AR)
  Receive Date: 20130219
  Receipt Date: 20130219
  Transmission Date: 20140127
  Serious: Yes (Other)
  Sender: FDA-Public Use
  Company Number: AR-AMGEN-ARGSP2012076641

PATIENT
  Age: 66 Year
  Sex: Female

DRUGS (4)
  1. ENBREL [Suspect]
     Indication: RHEUMATOID ARTHRITIS
     Dosage: 50 MG, WEEKLY
     Route: 058
     Dates: start: 20041021
  2. METHOTREXATE [Concomitant]
     Dosage: UNK
  3. METICORTEN [Concomitant]
     Dosage: UNK
  4. DIOVANE [Concomitant]
     Dosage: UNK

REACTIONS (4)
  - Abasia [Unknown]
  - Pain [Unknown]
  - Red blood cell count increased [Recovered/Resolved]
  - Red blood cell sedimentation rate increased [Recovered/Resolved]
